FAERS Safety Report 9182757 (Version 1)
Quarter: 2012Q4

REPORT INFORMATION
  Report Type: 
  Country: US (occurrence: US)
  Receive Date: 20121031
  Receipt Date: 20121031
  Transmission Date: 20130627
  Serious: Yes (Other)
  Sender: FDA-Public Use
  Company Number: US-RB-046049-12

PATIENT
  Age: 45 Year
  Sex: Female

DRUGS (2)
  1. SUBOXONE FILM [Suspect]
     Indication: DRUG DEPENDENCE
     Dosage: Suboxone film
     Route: 060
     Dates: start: 20121016
  2. LAMICTAL [Suspect]
     Indication: CONVULSION
     Dosage: Dosing details unknown
     Route: 048
     Dates: end: 20121003

REACTIONS (3)
  - Convulsion [Recovered/Resolved]
  - Off label use [Not Recovered/Not Resolved]
  - Headache [Recovered/Resolved]
